FAERS Safety Report 10929544 (Version 1)
Quarter: 2015Q1

REPORT INFORMATION
  Report Type: Spontaneous
  Country: US (occurrence: None)
  Receive Date: 20150317
  Receipt Date: 20150317
  Transmission Date: 20150721
  Serious: Yes (Hospitalization)
  Sender: FDA-Public Use
  Company Number: None

PATIENT
  Age: 53 Year
  Sex: Male

DRUGS (7)
  1. TIPRANAVIR [Suspect]
     Active Substance: TIPRANAVIR
     Indication: HIV INFECTION
     Dates: start: 201206, end: 20131011
  2. BARACLUDE [Concomitant]
     Active Substance: ENTECAVIR
  3. LOSARTAN [Concomitant]
     Active Substance: LOSARTAN
  4. RALTEGRAVIR [Suspect]
     Active Substance: RALTEGRAVIR
     Indication: HIV INFECTION
     Dates: start: 201306, end: 201310
  5. DIDANOSINE. [Suspect]
     Active Substance: DIDANOSINE
     Indication: HIV INFECTION
     Dates: start: 201306, end: 20131011
  6. EMTRICITABINE [Suspect]
     Active Substance: EMTRICITABINE
     Indication: HIV INFECTION
     Dates: start: 201306, end: 20131011
  7. RITONAVIR. [Suspect]
     Active Substance: RITONAVIR
     Indication: HIV INFECTION
     Dates: start: 201306, end: 20131011

REACTIONS (2)
  - Drug-induced liver injury [None]
  - Hepatitis cholestatic [None]

NARRATIVE: CASE EVENT DATE: 20131002
